FAERS Safety Report 4654583-7 (Version None)
Quarter: 2005Q2

REPORT INFORMATION
  Report Type: 
  Country: None (occurrence: None)
  Receive Date: 20050404
  Receipt Date: 20041206
  Transmission Date: 20051028
  Serious: No
  Sender: FDA-Public Use
  Company Number: USA041285354

PATIENT
  Age: 46 Year
  Sex: Female

DRUGS (3)
  1. CYMBALTA (DULOEXTINE HYDROCHLORIDE) [Suspect]
     Indication: FIBROMYALGIA
     Dosage: 60 MG
     Dates: start: 20041101
  2. ZOCOR (SIMVASTATIN RATIOPHARM) [Concomitant]
  3. ESTROGEN NOS [Concomitant]

REACTIONS (2)
  - ANGER [None]
  - DEPRESSION [None]
